FAERS Safety Report 19454768 (Version 1)
Quarter: 2021Q2

REPORT INFORMATION
  Report Type: Spontaneous
  Country: US (occurrence: US)
  Receive Date: 20210623
  Receipt Date: 20210623
  Transmission Date: 20210717
  Serious: Yes (Hospitalization)
  Sender: FDA-Public Use
  Company Number: US-MYLANLABS-2021M1036222

PATIENT

DRUGS (1)
  1. DOXORUBICIN [Suspect]
     Active Substance: DOXORUBICIN
     Indication: NEOPLASM MALIGNANT
     Dosage: ADMINISTERED PERIPHERALLY VIA INFUSION PUMP

REACTIONS (5)
  - Skin injury [Recovering/Resolving]
  - Necrosis [Recovering/Resolving]
  - Administration site extravasation [Recovering/Resolving]
  - Oedema peripheral [Recovering/Resolving]
  - Infection [Recovering/Resolving]
